APPROVED DRUG PRODUCT: DIZAC
Active Ingredient: DIAZEPAM
Strength: 5MG/ML **Federal Register determination that product was not discontinued or withdrawn for safety or effectiveness reasons**
Dosage Form/Route: INJECTABLE;INJECTION
Application: N019287 | Product #001
Applicant: PHARMACIA AND UPJOHN CO
Approved: Jun 18, 1993 | RLD: No | RS: No | Type: DISCN